FAERS Safety Report 18696877 (Version 1)
Quarter: 2021Q1

REPORT INFORMATION
  Report Type: Spontaneous
  Country: US (occurrence: US)
  Receive Date: 20210104
  Receipt Date: 20210104
  Transmission Date: 20210419
  Serious: Yes (Hospitalization)
  Sender: FDA-Public Use
  Company Number: US-MYLANLABS-2020M1106452

PATIENT
  Age: 74 Year
  Sex: Female

DRUGS (10)
  1. PROTONIX [Suspect]
     Active Substance: PANTOPRAZOLE SODIUM
     Indication: GASTROINTESTINAL STOMA OUTPUT INCREASED
     Route: 065
  2. LOPERAMIDE [Suspect]
     Active Substance: LOPERAMIDE
     Indication: SHORT-BOWEL SYNDROME
  3. COLESTYRAMINE [Suspect]
     Active Substance: CHOLESTYRAMINE
     Indication: SHORT-BOWEL SYNDROME
  4. PSYLLIUM                           /00029101/ [Suspect]
     Active Substance: HERBALS\PLANTAGO OVATA LEAF
     Indication: GASTROINTESTINAL STOMA OUTPUT INCREASED
     Route: 065
  5. PSYLLIUM                           /00029101/ [Suspect]
     Active Substance: HERBALS\PLANTAGO OVATA LEAF
     Indication: SHORT-BOWEL SYNDROME
  6. OCTREOTIDE. [Suspect]
     Active Substance: OCTREOTIDE
     Indication: SHORT-BOWEL SYNDROME
  7. LOPERAMIDE [Suspect]
     Active Substance: LOPERAMIDE
     Indication: GASTROINTESTINAL STOMA OUTPUT INCREASED
     Dosage: UNK
     Route: 065
  8. COLESTYRAMINE [Suspect]
     Active Substance: CHOLESTYRAMINE
     Indication: GASTROINTESTINAL STOMA OUTPUT INCREASED
     Route: 065
  9. PROTONIX [Suspect]
     Active Substance: PANTOPRAZOLE SODIUM
     Indication: SHORT-BOWEL SYNDROME
  10. OCTREOTIDE. [Suspect]
     Active Substance: OCTREOTIDE
     Indication: GASTROINTESTINAL STOMA OUTPUT INCREASED
     Route: 065

REACTIONS (2)
  - Off label use [Unknown]
  - Drug ineffective [Unknown]
